FAERS Safety Report 20351421 (Version 1)
Quarter: 2022Q1

REPORT INFORMATION
  Report Type: Spontaneous
  Country: US (occurrence: None)
  Receive Date: 20220118
  Receipt Date: 20220118
  Transmission Date: 20220423
  Serious: Yes (Other)
  Sender: FDA-Public Use
  Company Number: None

PATIENT
  Age: 55 Year
  Sex: Male
  Weight: 101 kg

DRUGS (4)
  1. BARICITINIB [Suspect]
     Active Substance: BARICITINIB
     Indication: Acute respiratory failure
     Dosage: FREQUENCY : DAILY;?
     Route: 048
     Dates: start: 20220107, end: 20220114
  2. BARICITINIB [Suspect]
     Active Substance: BARICITINIB
     Indication: Pneumonia
  3. BIVALIRUDIN [Concomitant]
     Active Substance: BIVALIRUDIN
     Dates: start: 20220113
  4. DEXAMETHASONE [Concomitant]
     Active Substance: DEXAMETHASONE
     Dates: start: 20220108, end: 20220116

REACTIONS (1)
  - Peripheral artery thrombosis [None]

NARRATIVE: CASE EVENT DATE: 20220113
